FAERS Safety Report 8585827 (Version 4)
Quarter: 2012Q4

REPORT INFORMATION
  Report Type: Report from Study
  Country: JP (occurrence: JP)
  Receive Date: 20120530
  Receipt Date: 20121227
  Transmission Date: 20130627
  Serious: Yes (Hospitalization, Other)
  Sender: FDA-Public Use
  Company Number: JP-VERTEX PHARMACEUTICALS INC.-AE-2012-007730

PATIENT
  Age: 60 Year
  Sex: Male

DRUGS (7)
  1. VX-950 (TELAPREVIR) [Suspect]
     Indication: CHRONIC HEPATITIS C
     Dosage: 1500 mg, qd
     Route: 048
     Dates: start: 20120404, end: 20120522
  2. REBETOL [Suspect]
     Indication: CHRONIC HEPATITIS C
     Dosage: 600 mg, qd
     Route: 048
     Dates: start: 20120404, end: 20120522
  3. PEGINTRON                          /01543001/ [Suspect]
     Indication: CHRONIC HEPATITIS C
     Dosage: 1.5 ?g/kg, qw
     Route: 058
     Dates: start: 20120404, end: 20120522
  4. LOXONIN [Suspect]
     Indication: ADVERSE EVENT
     Dosage: 60mg-120mg/day
     Route: 048
     Dates: start: 20120404, end: 20120522
  5. PARIET [Concomitant]
     Dosage: 10 mg, qd
     Route: 048
  6. NORVASC [Concomitant]
     Dosage: 2.5 mg, qd
     Route: 048
  7. SEIBULE [Concomitant]
     Dosage: 150 mg, qd
     Route: 048

REACTIONS (4)
  - White blood cell count decreased [Recovered/Resolved]
  - Haemoglobin decreased [Recovered/Resolved]
  - Platelet count decreased [Recovered/Resolved]
  - Small intestine ulcer [Recovered/Resolved]
